FAERS Safety Report 21350990 (Version 1)
Quarter: 2022Q3

REPORT INFORMATION
  Report Type: Spontaneous
  Country: US (occurrence: US)
  Receive Date: 20220919
  Receipt Date: 20220919
  Transmission Date: 20221027
  Serious: Yes (Death, Life-Threatening, Hospitalization)
  Sender: FDA-Public Use
  Company Number: US-TEVA-2022-US-2074165

PATIENT
  Age: 65 Year
  Sex: Female

DRUGS (10)
  1. ETHAMBUTOL [Suspect]
     Active Substance: ETHAMBUTOL HYDROCHLORIDE
     Indication: Disseminated tuberculosis
     Dosage: RIPE REGIMEN
     Route: 065
  2. ISONIAZID [Suspect]
     Active Substance: ISONIAZID
     Indication: Disseminated tuberculosis
     Dosage: RIPE REGIMEN
     Route: 065
  3. MYCOPHENOLIC ACID [Suspect]
     Active Substance: MYCOPHENOLIC ACID
     Indication: Immunosuppressant drug therapy
     Route: 065
  4. PREDNISONE [Suspect]
     Active Substance: PREDNISONE
     Indication: Immunosuppressant drug therapy
     Route: 065
  5. BASILIXIMAB [Suspect]
     Active Substance: BASILIXIMAB
     Indication: Immunosuppressant drug therapy
     Dosage: ADMINISTERED ON POSTOPERATIVE DAYS 0 AND 4
     Route: 065
  6. TACROLIMUS [Suspect]
     Active Substance: TACROLIMUS
     Indication: Immunosuppressant drug therapy
     Route: 065
  7. RIFAMPIN [Suspect]
     Active Substance: RIFAMPIN
     Indication: Disseminated tuberculosis
     Dosage: RIPE REGIMEN
     Route: 065
  8. PYRAZINAMIDE [Suspect]
     Active Substance: PYRAZINAMIDE
     Indication: Disseminated tuberculosis
     Dosage: RIPE REGIMEN
     Route: 065
  9. METRONIDAZOLE [Suspect]
     Active Substance: METRONIDAZOLE
     Indication: Clostridium difficile colitis
     Route: 042
  10. VANCOMYCIN [Concomitant]
     Active Substance: VANCOMYCIN
     Indication: Clostridium difficile colitis
     Route: 048

REACTIONS (12)
  - Disseminated tuberculosis [Fatal]
  - Pancreatitis haemorrhagic [Fatal]
  - Distributive shock [Fatal]
  - Infectious pleural effusion [Not Recovered/Not Resolved]
  - Respiratory tract infection [Unknown]
  - Staphylococcal infection [Unknown]
  - Klebsiella infection [Unknown]
  - Citrobacter infection [Unknown]
  - Respiratory syncytial virus infection [Unknown]
  - Aspergillus infection [Unknown]
  - Disseminated intravascular coagulation [Not Recovered/Not Resolved]
  - Multiple organ dysfunction syndrome [Not Recovered/Not Resolved]
